FAERS Safety Report 5027071-6 (Version None)
Quarter: 2006Q2

REPORT INFORMATION
  Report Type: 
  Country: None (occurrence: None)
  Receive Date: 20060615
  Receipt Date: 20060613
  Transmission Date: 20061013
  Serious: Yes (Death, Hospitalization, Other)
  Sender: FDA-Public Use
  Company Number: US-SANOFI-SYNTHELABO-F01200601428

PATIENT
  Sex: Male

DRUGS (3)
  1. AVASTIN [Suspect]
     Route: 042
     Dates: start: 20060425, end: 20060425
  2. CAPECITABINE [Suspect]
     Route: 048
     Dates: start: 20060328, end: 20060508
  3. OXALIPLATIN [Suspect]
     Indication: COLORECTAL CANCER
     Route: 042
     Dates: start: 20060425, end: 20060425

REACTIONS (3)
  - ABDOMINAL PAIN [None]
  - DEATH [None]
  - DIARRHOEA [None]
